FAERS Safety Report 12262902 (Version 10)
Quarter: 2017Q4

REPORT INFORMATION
  Report Type: Spontaneous
  Country: IT (occurrence: IT)
  Receive Date: 20160413
  Receipt Date: 20171113
  Transmission Date: 20180320
  Serious: Yes (Other)
  Sender: FDA-Public Use
  Company Number: IT-TEVA-650977ACC

PATIENT
  Age: 41 Year
  Sex: Male

DRUGS (1)
  1. COPAXONE [Suspect]
     Active Substance: GLATIRAMER ACETATE
     Indication: MULTIPLE SCLEROSIS
     Dosage: 20 MILLIGRAM/MILLILITERS DAILY;
     Dates: start: 201309

REACTIONS (39)
  - Back pain [Unknown]
  - Hernia [Unknown]
  - Injection site pruritus [Recovered/Resolved]
  - Hypertonia [Unknown]
  - Erythema [Recovered/Resolved]
  - Drug ineffective [Unknown]
  - Limb deformity [Unknown]
  - Injection site pain [Unknown]
  - Arthralgia [Not Recovered/Not Resolved]
  - Injection site erythema [Unknown]
  - Injection site hypersensitivity [Unknown]
  - Hot flush [Recovered/Resolved]
  - Nausea [Unknown]
  - Scoliosis [Unknown]
  - Melanocytic naevus [Unknown]
  - Headache [Not Recovered/Not Resolved]
  - Irritability [Unknown]
  - Injection site hypoaesthesia [Unknown]
  - Injection site scar [Unknown]
  - Injection site urticaria [Unknown]
  - Injection site inflammation [Unknown]
  - Dysgeusia [Unknown]
  - Nuclear magnetic resonance imaging abnormal [Recovering/Resolving]
  - Mood swings [Not Recovered/Not Resolved]
  - Decreased activity [Not Recovered/Not Resolved]
  - Injection site reaction [Unknown]
  - Rash [Unknown]
  - Osteoarthritis [Unknown]
  - Asthenia [Unknown]
  - Injection site swelling [Unknown]
  - Anorectal disorder [Unknown]
  - Haemangioma [Unknown]
  - Hypertension [Unknown]
  - Spinal deformity [Unknown]
  - Migraine [Unknown]
  - Tremor [Unknown]
  - Panic attack [Recovered/Resolved]
  - Tachycardia [Recovered/Resolved]
  - Central nervous system lesion [Recovering/Resolving]

NARRATIVE: CASE EVENT DATE: 201505
